FAERS Safety Report 6739968-7 (Version None)
Quarter: 2010Q2

REPORT INFORMATION
  Report Type: 
  Country: None (occurrence: None)
  Receive Date: 20100525
  Receipt Date: 20100514
  Transmission Date: 20101027
  Serious: Yes (Hospitalization)
  Sender: FDA-Public Use
  Company Number: JP-ELI_LILLY_AND_COMPANY-JP201005002984

PATIENT
  Age: 65 Year
  Sex: Male

DRUGS (1)
  1. HUMALOG MIX 75/25 [Suspect]
     Route: 065

REACTIONS (2)
  - ANTI-INSULIN ANTIBODY POSITIVE [None]
  - HOSPITALISATION [None]
